FAERS Safety Report 12941136 (Version 1)
Quarter: 2016Q4

REPORT INFORMATION
  Report Type: Spontaneous
  Country: US (occurrence: US)
  Receive Date: 20161115
  Receipt Date: 20161115
  Transmission Date: 20170207
  Serious: Yes (Hospitalization)
  Sender: FDA-Public Use
  Company Number: US-TEVA-711607USA

PATIENT
  Sex: Male

DRUGS (7)
  1. SULFAMETHOXAZOLE-TRIMETHOPRIM (SMZ) [Suspect]
     Active Substance: SULFAMETHOXAZOLE\TRIMETHOPRIM
     Indication: URINARY TRACT INFECTION
     Route: 065
  2. XTANDI [Suspect]
     Active Substance: ENZALUTAMIDE
     Indication: PROSTATE CANCER
     Dosage: 160 MILLIGRAM DAILY; REGIMEN#1
     Route: 048
  3. XTANDI [Suspect]
     Active Substance: ENZALUTAMIDE
     Indication: PROSTATE CANCER
     Dosage: 120 MILLIGRAM DAILY; REGIMEN#2
     Route: 048
     Dates: start: 201605, end: 20160521
  4. XTANDI [Suspect]
     Active Substance: ENZALUTAMIDE
     Dosage: 160 MILLIGRAM DAILY; REGIMEN#3
     Route: 048
  5. OMEPRAZOLE. [Concomitant]
     Active Substance: OMEPRAZOLE
  6. AMITIZA [Concomitant]
     Active Substance: LUBIPROSTONE
  7. SULFAMETHOXAZOLE [Concomitant]
     Active Substance: SULFAMETHOXAZOLE

REACTIONS (17)
  - Insomnia [Unknown]
  - Joint swelling [Unknown]
  - Headache [Unknown]
  - Breast swelling [Unknown]
  - Decreased appetite [Unknown]
  - Fatigue [Unknown]
  - Peripheral swelling [Unknown]
  - Nausea [Recovered/Resolved]
  - Dizziness [Unknown]
  - Joint stiffness [Unknown]
  - Gait disturbance [Unknown]
  - Feeling hot [Unknown]
  - Arthritis [Unknown]
  - Asthenia [Unknown]
  - Dysgeusia [Unknown]
  - Arthralgia [Unknown]
  - Myalgia [Unknown]
